FAERS Safety Report 7221753-3 (Version None)
Quarter: 2011Q1

REPORT INFORMATION
  Report Type: 
  Country: None (occurrence: None)
  Receive Date: 20110111
  Receipt Date: 20101220
  Transmission Date: 20110831
  Serious: No
  Sender: FDA-Public Use
  Company Number: DL2010-0997

PATIENT
  Age: 31 Year
  Sex: Female

DRUGS (3)
  1. DOXYCYCLINE [Concomitant]
  2. MIFEPRISTONE TABLETS, 200 MG (DANCO LABS) [Suspect]
     Indication: ABORTION INDUCED
     Dosage: 200 MG, ORAL
     Route: 048
     Dates: start: 20100930
  3. MISOPROSOTOL TABLETS, 200 MCG [Suspect]
     Dosage: 800 MCG, BUCCAL; 800 MG, BUCCAL
     Route: 002
     Dates: start: 20101014

REACTIONS (2)
  - ANAEMIA [None]
  - HAEMORRHAGE [None]
